FAERS Safety Report 7163115-3 (Version None)
Quarter: 2010Q4

REPORT INFORMATION
  Report Type: 
  Country: None (occurrence: None)
  Receive Date: 20101215
  Receipt Date: 20100302
  Transmission Date: 20110411
  Serious: Yes (Other)
  Sender: FDA-Public Use
  Company Number: US-PFIZER INC-2009239957

PATIENT
  Sex: Female
  Weight: 90.703 kg

DRUGS (5)
  1. LYRICA [Suspect]
     Indication: NEUROSURGERY
     Dosage: 50 MG, 3X/DAY
     Route: 048
     Dates: start: 20080101, end: 20100227
  2. LYRICA [Suspect]
     Indication: FIBROMYALGIA
  3. OXYCONTIN [Concomitant]
     Indication: BACK PAIN
     Dosage: UNK
  4. OXYCONTIN [Concomitant]
     Indication: NECK PAIN
  5. SOMA [Concomitant]
     Indication: MUSCLE SPASMS
     Dosage: UNK

REACTIONS (1)
  - HYPOTHYROIDISM [None]
